FAERS Safety Report 5574041-5 (Version None)
Quarter: 2007Q4

REPORT INFORMATION
  Report Type: 
  Country: None (occurrence: None)
  Receive Date: 20071221
  Receipt Date: 20071209
  Transmission Date: 20080405
  Serious: Yes (Other)
  Sender: FDA-Public Use
  Company Number: 2007S1013318

PATIENT
  Age: 42 Year
  Sex: Male

DRUGS (7)
  1. ATORVASTATIN CALCIUM [Suspect]
     Indication: TYPE IIA HYPERLIPIDAEMIA
  2. EZETIMIBE [Suspect]
     Indication: TYPE IIA HYPERLIPIDAEMIA
  3. PHENYTOIN [Suspect]
  4. ISOSORBIDE MONONITRATE [Concomitant]
  5. VERAPAMIL [Concomitant]
  6. CLOPIDOGREL [Concomitant]
  7. AMLODIPINE [Concomitant]

REACTIONS (2)
  - ALCOHOL USE [None]
  - RHABDOMYOLYSIS [None]
